FAERS Safety Report 14294144 (Version 1)
Quarter: 2017Q4

REPORT INFORMATION
  Report Type: Spontaneous
  Country: US (occurrence: US)
  Receive Date: 20171217
  Receipt Date: 20171217
  Transmission Date: 20180321
  Serious: No
  Sender: FDA-Public Use
  Company Number: US-LUNDBECK-DKLU2031421

PATIENT
  Age: 71 Year
  Sex: Male

DRUGS (2)
  1. NORTHERA [Suspect]
     Active Substance: DROXIDOPA
     Indication: PRODUCT USED FOR UNKNOWN INDICATION
     Dosage: SCHEDULE C/TITRATION COMPLETE
     Route: 048
     Dates: start: 20170429
  2. NORTHERA [Suspect]
     Active Substance: DROXIDOPA
     Route: 048

REACTIONS (3)
  - Hyperhidrosis [Unknown]
  - Blood pressure increased [Unknown]
  - Feeling cold [Unknown]

NARRATIVE: CASE EVENT DATE: 20170514
